FAERS Safety Report 23161803 (Version 2)
Quarter: 2023Q4

REPORT INFORMATION
  Report Type: Spontaneous
  Country: AU (occurrence: AU)
  Receive Date: 20231108
  Receipt Date: 20231122
  Transmission Date: 20240110
  Serious: Yes (Hospitalization)
  Sender: FDA-Public Use
  Company Number: AU-JNJFOC-20231103339

PATIENT
  Age: 24 Year
  Sex: Female

DRUGS (10)
  1. OPSUMIT [Suspect]
     Active Substance: MACITENTAN
     Indication: Pulmonary arterial hypertension
     Route: 048
  2. TADALAFIL [Suspect]
     Active Substance: TADALAFIL
     Indication: Pulmonary arterial hypertension
     Dosage: 2 TABLET OF 20 MG MORNING
     Route: 048
  3. LACRITEC [Concomitant]
     Dosage: 2 CAPSULES DAILY
     Route: 048
  4. BLACKMORES EXECUTIVE B STRESS FORMULA [Concomitant]
     Dosage: 1 TABLET DAILY
     Route: 048
  5. LITHIUM CARBONATE [Concomitant]
     Active Substance: LITHIUM CARBONATE
     Route: 048
  6. ESCITALOPRAM OXALATE [Concomitant]
     Active Substance: ESCITALOPRAM OXALATE
     Route: 048
  7. MINOXIDIL [Concomitant]
     Active Substance: MINOXIDIL
     Dosage: 0.15 MG MORNING AND EVENING
     Route: 048
  8. PROBIOTICS NOS [Concomitant]
     Active Substance: PROBIOTICS NOS
     Dosage: MORNING
     Route: 048
  9. BLACKMORES BIO MAGNESIUM [Concomitant]
     Dosage: 1 TABLET MORNING
     Route: 048
  10. AMINO COMPLEX 600 GOOD^N NATURAL [Concomitant]
     Dosage: 1 CAPSULE MORNING
     Route: 048

REACTIONS (1)
  - Pneumonia [Unknown]

NARRATIVE: CASE EVENT DATE: 20231031
